FAERS Safety Report 7428414-6 (Version None)
Quarter: 2011Q2

REPORT INFORMATION
  Report Type: 
  Country: None (occurrence: None)
  Receive Date: 20110421
  Receipt Date: 20110417
  Transmission Date: 20111010
  Serious: Yes (Death)
  Sender: FDA-Public Use
  Company Number: PHHY2011AE25118

PATIENT
  Age: 89 Year
  Sex: Female
  Weight: 62 kg

DRUGS (9)
  1. DIURETICS [Concomitant]
     Indication: HYPERTENSION
     Dosage: 12.5 MG, UNK
     Dates: start: 19920101
  2. ACE INHIBITOR NOS [Concomitant]
     Indication: HYPERTENSION
     Dosage: UNK
     Dates: start: 19940101
  3. ANGIOTENSIN II ANTAGONISTS [Concomitant]
     Indication: HYPERTENSION
     Dosage: 300 MG, UNK
     Dates: start: 19950101
  4. RASILEZ [Suspect]
     Indication: ESSENTIAL HYPERTENSION
     Route: 048
  5. BETA BLOCKING AGENTS [Concomitant]
     Indication: HYPERTENSION
     Dosage: 100 MG, UNK
     Dates: start: 19900101
  6. BETA BLOCKING AGENTS [Concomitant]
     Indication: ISCHAEMIA
  7. BETA BLOCKING AGENTS [Concomitant]
     Indication: CARDIOMYOPATHY
  8. CALCIUM CHANNEL BLOCKERS [Concomitant]
     Indication: HYPERTENSION
     Dosage: 10 MG, UNK
     Dates: start: 19930101
  9. CALCIUM CHANNEL BLOCKERS [Concomitant]
     Indication: MYOCARDIAL ISCHAEMIA

REACTIONS (1)
  - DEATH [None]
